FAERS Safety Report 17660739 (Version 1)
Quarter: 2020Q2

REPORT INFORMATION
  Report Type: Spontaneous
  Country: US (occurrence: US)
  Receive Date: 20200410
  Receipt Date: 20200410
  Transmission Date: 20200713
  Serious: Yes (Death)
  Sender: FDA-Public Use
  Company Number: None

PATIENT
  Age: 59 Year
  Sex: Female
  Weight: 76.5 kg

DRUGS (7)
  1. BRAFTOVI [Suspect]
     Active Substance: ENCORAFENIB
     Indication: COLON CANCER
     Route: 048
     Dates: start: 20191001, end: 20200410
  2. TYLENOL 325MG, ORAL [Concomitant]
  3. CLARITIN 10MG, ORAL [Concomitant]
  4. PROCHLORPERAZINE, 10MG, ORAL [Concomitant]
  5. FLONASE ALLERGY 50MCG/ACTUATION, NASAL [Concomitant]
  6. MEKTOVI [Suspect]
     Active Substance: BINIMETINIB
     Indication: COLON CANCER
     Route: 048
     Dates: start: 20191002, end: 20200410
  7. HYDROCODONE - ACETAMINOPHEN, ORAL [Concomitant]

REACTIONS (1)
  - Death [None]

NARRATIVE: CASE EVENT DATE: 20200410
